FAERS Safety Report 8534375-9 (Version None)
Quarter: 2012Q3

REPORT INFORMATION
  Report Type: 
  Country: None (occurrence: None)
  Receive Date: 20120724
  Receipt Date: 20120709
  Transmission Date: 20120928
  Serious: Yes (Other)
  Sender: FDA-Public Use
  Company Number: PL-WATSON-2012-12428

PATIENT
  Sex: Female

DRUGS (1)
  1. GEMCITABINE [Suspect]
     Indication: NEURILEMMOMA MALIGNANT
     Dosage: UNK
     Route: 065

REACTIONS (5)
  - ANAEMIA [None]
  - LIVER INJURY [None]
  - PYREXIA [None]
  - LEUKOPENIA [None]
  - PURPURA [None]
